FAERS Safety Report 15496710 (Version 1)
Quarter: 2018Q4

REPORT INFORMATION
  Report Type: Spontaneous
  Country: IN (occurrence: IN)
  Receive Date: 20181014
  Receipt Date: 20181014
  Transmission Date: 20190205
  Serious: Yes (Hospitalization, Other)
  Sender: FDA-Public Use
  Company Number: PHHY2018IN119998

PATIENT
  Age: 18 Month
  Sex: Male

DRUGS (2)
  1. ENALAPRIL [Suspect]
     Active Substance: ENALAPRIL
     Indication: NEPHROTIC SYNDROME
     Dosage: UNK
     Route: 065
  2. FUROSEMIDE. [Suspect]
     Active Substance: FUROSEMIDE
     Indication: NEPHROTIC SYNDROME
     Dosage: UNK
     Route: 065

REACTIONS (12)
  - Hypomagnesaemia [Unknown]
  - Cough [Unknown]
  - Metabolic alkalosis [Unknown]
  - Diarrhoea infectious [Unknown]
  - Weight decreased [Unknown]
  - Nasopharyngitis [Unknown]
  - Hypokalaemia [Unknown]
  - Wheezing [Unknown]
  - Asthenia [Unknown]
  - Pseudo-Bartter syndrome [Unknown]
  - Hypocalcaemia [Unknown]
  - Decreased appetite [Unknown]
